FAERS Safety Report 8609946 (Version 2)
Quarter: 2012Q4

REPORT INFORMATION
  Report Type: 
  Country: CA (occurrence: CA)
  Receive Date: 20120612
  Receipt Date: 20120903
  Transmission Date: 20130627
  Serious: Yes (Hospitalization, Other)
  Sender: FDA-Public Use
  Company Number: CA-BRISTOL-MYERS SQUIBB COMPANY-16662751

PATIENT
  Age: 34 Year
  Sex: Male

DRUGS (7)
  1. ABILIFY [Suspect]
     Indication: DEPRESSION
     Dosage: took half of 2mg tab for 2 days
on 3rd dy took a whole 2mg tab
     Route: 048
     Dates: start: 20120601, end: 20120603
  2. METFORMIN HCL [Suspect]
  3. EPIVAL [Suspect]
  4. SYNTHROID [Suspect]
  5. CELEXA [Suspect]
  6. DIVALPROEX SODIUM [Suspect]
     Dosage: 1df= 250 TAM, 500 THS
more than 2 yrs
  7. ZYLOPRIM [Suspect]
     Dosage: T/D
more than 2 yrs

REACTIONS (4)
  - Muscle spasms [Recovering/Resolving]
  - Somnolence [Recovering/Resolving]
  - Mydriasis [Recovering/Resolving]
  - Medication error [Recovering/Resolving]
